FAERS Safety Report 11824682 (Version 1)
Quarter: 2015Q4

REPORT INFORMATION
  Report Type: Spontaneous
  Country: US (occurrence: US)
  Receive Date: 20151210
  Receipt Date: 20151210
  Transmission Date: 20160305
  Serious: Yes (Hospitalization)
  Sender: FDA-Public Use
  Company Number: US-TEVA-617518USA

PATIENT
  Age: 60 Year
  Sex: Male

DRUGS (1)
  1. WARFARIN [Suspect]
     Active Substance: WARFARIN
     Indication: ANTICOAGULANT THERAPY
     Route: 065

REACTIONS (3)
  - Cardiac tamponade [Recovered/Resolved]
  - International normalised ratio increased [Recovered/Resolved]
  - Haematoma [Recovered/Resolved]
